FAERS Safety Report 10366160 (Version 1)
Quarter: 2014Q3

REPORT INFORMATION
  Report Type: Spontaneous
  Country: US (occurrence: None)
  Receive Date: 20140805
  Receipt Date: 20140805
  Transmission Date: 20150326
  Serious: Yes (Other)
  Sender: FDA-Public Use
  Company Number: None

PATIENT
  Age: 84 Year
  Sex: Male
  Weight: 74.84 kg

DRUGS (1)
  1. AMOXICILLIN TR/POTASSIUM CLAVULANATE [Suspect]
     Active Substance: AMOXICILLIN\CLAVULANATE POTASSIUM
     Indication: OROPHARYNGEAL PAIN
     Route: 048
     Dates: start: 20140506, end: 20140512

REACTIONS (6)
  - Drug hypersensitivity [None]
  - Papule [None]
  - Oropharyngeal pain [None]
  - Dysphagia [None]
  - Tongue discolouration [None]
  - Pharyngeal erythema [None]
